FAERS Safety Report 21571243 (Version 1)
Quarter: 2022Q4

REPORT INFORMATION
  Report Type: Spontaneous
  Country: EG (occurrence: None)
  Receive Date: 20221109
  Receipt Date: 20221109
  Transmission Date: 20230113
  Serious: Yes (Other)
  Sender: FDA-Public Use
  Company Number: 2022A364163

PATIENT
  Age: 41 Year
  Sex: Female

DRUGS (1)
  1. CRESTOR [Suspect]
     Active Substance: ROSUVASTATIN CALCIUM
     Indication: Low density lipoprotein
     Route: 048
     Dates: start: 20220916, end: 20221020

REACTIONS (1)
  - Alopecia [Not Recovered/Not Resolved]
